FAERS Safety Report 9550481 (Version 11)
Quarter: 2016Q2

REPORT INFORMATION
  Report Type: Report from Study
  Country: US (occurrence: US)
  Receive Date: 20130924
  Receipt Date: 20160421
  Transmission Date: 20160815
  Serious: Yes (Hospitalization, Other)
  Sender: FDA-Public Use
  Company Number: US-SANOFI-AVENTIS-2013SA081306

PATIENT
  Age: 63 Year
  Sex: Male

DRUGS (2)
  1. COPAXONE [Concomitant]
     Active Substance: GLATIRAMER ACETATE
     Dates: start: 20031101, end: 20121210
  2. AUBAGIO [Suspect]
     Active Substance: TERIFLUNOMIDE
     Indication: MULTIPLE SCLEROSIS
     Route: 048
     Dates: start: 20121211

REACTIONS (18)
  - Balance disorder [Not Recovered/Not Resolved]
  - Nausea [Unknown]
  - Pneumothorax [Recovering/Resolving]
  - Loss of consciousness [Recovering/Resolving]
  - Cognitive disorder [Not Recovered/Not Resolved]
  - Diplopia [Not Recovered/Not Resolved]
  - Central nervous system lesion [Unknown]
  - Unevaluable event [Unknown]
  - Fall [Unknown]
  - Rib fracture [Recovering/Resolving]
  - Bladder disorder [Not Recovered/Not Resolved]
  - Dehydration [Unknown]
  - Multiple sclerosis [Recovering/Resolving]
  - Feeling abnormal [Unknown]
  - Speech disorder [Not Recovered/Not Resolved]
  - Gastroenteritis viral [Unknown]
  - Fatigue [Not Recovered/Not Resolved]
  - Abdominal discomfort [Not Recovered/Not Resolved]

NARRATIVE: CASE EVENT DATE: 20150925
